FAERS Safety Report 7392597-7 (Version None)
Quarter: 2011Q2

REPORT INFORMATION
  Report Type: 
  Country: None (occurrence: None)
  Receive Date: 20110404
  Receipt Date: 20110325
  Transmission Date: 20111010
  Serious: Yes (Hospitalization)
  Sender: FDA-Public Use
  Company Number: A0921122A

PATIENT
  Age: 86 Year
  Sex: Male
  Weight: 84.5 kg

DRUGS (2)
  1. OFATUMUMAB [Suspect]
     Indication: NON-HODGKIN'S LYMPHOMA
     Route: 042
     Dates: start: 20100928
  2. BENDAMUSTINE [Suspect]
     Indication: NON-HODGKIN'S LYMPHOMA
     Route: 042
     Dates: start: 20100928

REACTIONS (2)
  - FEBRILE NEUTROPENIA [None]
  - DEPRESSED LEVEL OF CONSCIOUSNESS [None]
